FAERS Safety Report 6072454-9 (Version None)
Quarter: 2009Q1

REPORT INFORMATION
  Report Type: 
  Country: None (occurrence: None)
  Receive Date: 20090210
  Receipt Date: 20090108
  Transmission Date: 20090719
  Serious: Yes (Other)
  Sender: FDA-Public Use
  Company Number: US-PFIZER INC-2008160671

PATIENT
  Sex: Male
  Weight: 79.378 kg

DRUGS (1)
  1. DIFLUCAN [Suspect]
     Indication: RIFT VALLEY FEVER
     Dosage: 400 MG, 2X/DAY
     Route: 048
     Dates: start: 20080801, end: 20080901

REACTIONS (1)
  - BLOOD PRESSURE INCREASED [None]
